FAERS Safety Report 16675196 (Version 1)
Quarter: 2019Q3

REPORT INFORMATION
  Report Type: Spontaneous
  Country: DE (occurrence: DE)
  Receive Date: 20190806
  Receipt Date: 20190806
  Transmission Date: 20191004
  Serious: Yes (Hospitalization)
  Sender: FDA-Public Use
  Company Number: DE-LUNDBECK-DKLU3001527

PATIENT
  Age: 6 Year
  Sex: Male
  Weight: 23 kg

DRUGS (4)
  1. CIATYL-Z TROPFEN 20 MG/ML [Suspect]
     Active Substance: ZUCLOPENTHIXOL HYDROCHLORIDE
     Indication: EPILEPSY
     Dosage: 6-0-7 DROPS
     Route: 048
  2. VIMPAT [Suspect]
     Active Substance: LACOSAMIDE
     Indication: EPILEPSY
     Dosage: 200 MG
     Route: 048
  3. DIPIPERON [Suspect]
     Active Substance: PIPAMPERONE
     Indication: RESTLESSNESS
     Dosage: 120 MG
     Route: 048
  4. FRISIUM [Suspect]
     Active Substance: CLOBAZAM
     Indication: EPILEPSY
     Dosage: 10 MG
     Route: 048

REACTIONS (5)
  - Product use in unapproved indication [Unknown]
  - Product administration error [Unknown]
  - Overdose [Unknown]
  - Product administered to patient of inappropriate age [Unknown]
  - Somnolence [Recovered/Resolved]

NARRATIVE: CASE EVENT DATE: 20180924
